FAERS Safety Report 19705454 (Version 1)
Quarter: 2021Q3

REPORT INFORMATION
  Report Type: Spontaneous
  Country: US (occurrence: US)
  Receive Date: 20210816
  Receipt Date: 20210816
  Transmission Date: 20211014
  Serious: No
  Sender: FDA-Public Use
  Company Number: US-PFIZER INC-202100999152

PATIENT
  Age: 47 Year
  Sex: Female

DRUGS (1)
  1. XELJANZ XR [Suspect]
     Active Substance: TOFACITINIB CITRATE
     Indication: RHEUMATOID ARTHRITIS
     Dosage: 11 MG, DAILY
     Route: 048
     Dates: start: 20210623

REACTIONS (7)
  - Overweight [Unknown]
  - Loss of personal independence in daily activities [Unknown]
  - Product dose omission issue [Unknown]
  - Depressed mood [Unknown]
  - Gait disturbance [Unknown]
  - Joint injury [Unknown]
  - Memory impairment [Unknown]
